FAERS Safety Report 5713722-7 (Version None)
Quarter: 2008Q2

REPORT INFORMATION
  Report Type: 
  Country: None (occurrence: None)
  Receive Date: 20080421
  Receipt Date: 20080409
  Transmission Date: 20081010
  Serious: Yes (Hospitalization)
  Sender: FDA-Public Use
  Company Number: ADR0632008

PATIENT
  Sex: Female
  Weight: 96.1626 kg

DRUGS (12)
  1. RAMIPRIL [Suspect]
     Indication: HYPERTENSION
     Dosage: 5MG/DAY, ORAL
     Route: 048
     Dates: start: 20080330, end: 20080402
  2. ADVAIR HFA [Concomitant]
  3. LIPITOR [Concomitant]
  4. PREDNISONE [Concomitant]
  5. LEVAQUIN [Concomitant]
  6. CLINDAMYCIN [Concomitant]
  7. ASPIRIN [Concomitant]
  8. VIT. E [Concomitant]
  9. FISH OIL [Concomitant]
  10. GLUCOSAMINE/CHONDROITIN [Concomitant]
  11. CALCIUM [Concomitant]
  12. MULTIVIATMIN [Concomitant]

REACTIONS (7)
  - ANGIOEDEMA [None]
  - ARTHROPOD BITE [None]
  - DYSPHAGIA [None]
  - ERYTHEMA [None]
  - FLUSHING [None]
  - PRURITUS [None]
  - URINARY TRACT INFECTION [None]
